FAERS Safety Report 9238370 (Version 3)
Quarter: 2013Q3

REPORT INFORMATION
  Report Type: Spontaneous
  Country: JP (occurrence: None)
  Receive Date: 20130416
  Receipt Date: 20130730
  Transmission Date: 20140515
  Serious: Yes (Disabling)
  Sender: FDA-Public Use
  Company Number: TCI2013A01953

PATIENT
  Age: 87 Year
  Sex: Male

DRUGS (11)
  1. NESINA [Suspect]
     Indication: TYPE 2 DIABETES MELLITUS
     Route: 048
     Dates: start: 20111129, end: 20120911
  2. ADALAT CR(NIFEDIPINE) [Concomitant]
  3. NU-LOTAN(LOSARTAN POTASSIUM) [Concomitant]
  4. ZYLORIC(ALLOPURINOL) [Concomitant]
  5. MIKELAN(CARTEOLOL HYDROCHLORIDE) [Concomitant]
  6. PANALDINE [Concomitant]
  7. PRONON(PROPAFENONE HYDROCHLORIDE) [Concomitant]
  8. OPALMON(LIMAPROST) [Concomitant]
  9. LORCAM [Suspect]
     Dosage: 12 MG (4 MG,3 IN 1 D)
     Route: 048
     Dates: end: 2012
  10. MUCOSTA(REBAMIPIDE) [Concomitant]
  11. CARTEOLOL HYDROCHLORIDE [Suspect]
     Indication: HYPERTENSION
     Route: 048
     Dates: end: 20120131

REACTIONS (3)
  - Renal impairment [None]
  - Orthostatic hypotension [None]
  - Blood pressure increased [None]
